FAERS Safety Report 21614134 (Version 1)
Quarter: 2022Q4

REPORT INFORMATION
  Report Type: Spontaneous
  Country: US (occurrence: None)
  Receive Date: 20221116
  Receipt Date: 20221116
  Transmission Date: 20230113
  Serious: No
  Sender: FDA-Public Use
  Company Number: None

PATIENT

DRUGS (4)
  1. METOCLOPRAMIDE [Suspect]
     Active Substance: METOCLOPRAMIDE
  2. OXYTOCIN [Suspect]
     Active Substance: OXYTOCIN
  3. GLYCOPYRROLATE [Suspect]
     Active Substance: GLYCOPYRROLATE
  4. ONDANSETRON [Suspect]
     Active Substance: ONDANSETRON

REACTIONS (2)
  - Wrong product stored [None]
  - Intercepted product dispensing error [None]
